FAERS Safety Report 8926404 (Version 1)
Quarter: 2012Q4

REPORT INFORMATION
  Report Type: 
  Country: DE (occurrence: DE)
  Receive Date: 20121127
  Receipt Date: 20121127
  Transmission Date: 20130627
  Serious: Yes (Congenital Anomaly)
  Sender: FDA-Public Use
  Company Number: DE-GLAXOSMITHKLINE-D0077855A

PATIENT
  Sex: Male
  Weight: 3.9 kg

DRUGS (4)
  1. PAROXETIN [Suspect]
     Indication: DEPRESSION
     Dosage: 20MG per day
     Route: 064
     Dates: start: 20110430
  2. CALCIUM CARBONATE + MAGNESIUM CARBONATE [Concomitant]
     Indication: DYSPEPSIA
     Route: 064
     Dates: start: 20110430
  3. NASIC [Concomitant]
     Indication: RHINITIS
     Route: 064
     Dates: start: 20111129, end: 20111201
  4. FOLIC ACID [Concomitant]
     Indication: PROPHYLAXIS OF NEURAL TUBE DEFECT
     Dosage: .4MG Twice per day
     Route: 064
     Dates: start: 20110430

REACTIONS (3)
  - Cryptorchism [Unknown]
  - Foot deformity [Unknown]
  - Foetal exposure during pregnancy [Unknown]
